FAERS Safety Report 14439237 (Version 1)
Quarter: 2018Q1

REPORT INFORMATION
  Report Type: Other
  Country: PL (occurrence: PL)
  Receive Date: 20180125
  Receipt Date: 20180125
  Transmission Date: 20180509
  Serious: Yes (Other)
  Sender: FDA-Public Use
  Company Number: PL-ALSI-201800027

PATIENT
  Age: 44 Year
  Sex: Female

DRUGS (5)
  1. OXYGEN 100% [Suspect]
     Active Substance: OXYGEN
     Indication: DEAFNESS NEUROSENSORY
     Route: 055
     Dates: start: 20160119, end: 20160208
  2. OXYGEN 100% [Suspect]
     Active Substance: OXYGEN
     Indication: HYPERBARIC OXYGEN THERAPY
     Route: 055
     Dates: start: 20160119, end: 20160208
  3. PREDNISONE. [Concomitant]
     Active Substance: PREDNISONE
  4. CEFUROXIME. [Concomitant]
     Active Substance: CEFUROXIME
  5. PENTOXIFYLLINE. [Concomitant]
     Active Substance: PENTOXIFYLLINE

REACTIONS (3)
  - Off label use [Recovered/Resolved]
  - Therapeutic response unexpected [Recovered/Resolved]
  - Myopia [Recovered/Resolved]
